FAERS Safety Report 17515549 (Version 1)
Quarter: 2020Q1

REPORT INFORMATION
  Report Type: Spontaneous
  Country: US (occurrence: US)
  Receive Date: 20200309
  Receipt Date: 20200309
  Transmission Date: 20200409
  Serious: Yes (Other)
  Sender: FDA-Public Use
  Company Number: US-ABBVIE-20K-163-3304598-00

PATIENT
  Age: 36 Year
  Sex: Male

DRUGS (2)
  1. VICODIN [Suspect]
     Active Substance: ACETAMINOPHEN\HYDROCODONE BITARTRATE
     Indication: PRODUCT USED FOR UNKNOWN INDICATION
     Route: 048
  2. FENTANYL. [Suspect]
     Active Substance: FENTANYL
     Indication: PRODUCT USED FOR UNKNOWN INDICATION
     Route: 065

REACTIONS (14)
  - Drug dependence [Unknown]
  - Gambling disorder [Unknown]
  - Fear [Unknown]
  - Accident [Unknown]
  - Injury [Unknown]
  - Drug abuse [Unknown]
  - Dyspnoea [Unknown]
  - Malnutrition [Unknown]
  - Depression [Unknown]
  - Constipation [Unknown]
  - Dysphagia [Unknown]
  - Sexual dysfunction [Unknown]
  - Alcoholism [Unknown]
  - Visual impairment [Unknown]
